FAERS Safety Report 16844553 (Version 1)
Quarter: 2019Q3

REPORT INFORMATION
  Report Type: Report from Study
  Country: None (occurrence: BR)
  Receive Date: 20190924
  Receipt Date: 20190924
  Transmission Date: 20191005
  Serious: Yes (Other)
  Sender: FDA-Public Use
  Company Number: BR-ABBVIE-19K-020-2934476-00

PATIENT
  Sex: Female
  Weight: 114 kg

DRUGS (19)
  1. ATENOLOL. [Concomitant]
     Active Substance: ATENOLOL
     Indication: HYPERTENSION
     Route: 048
  2. FAMOTIDINE. [Concomitant]
     Active Substance: FAMOTIDINE
     Indication: HEADACHE
     Route: 048
     Dates: start: 2017
  3. FLUOXETINE [Concomitant]
     Active Substance: FLUOXETINE HYDROCHLORIDE
     Indication: HEADACHE
  4. GINKGO BILOBA [Concomitant]
     Active Substance: GINKGO
     Indication: INSOMNIA
  5. FLUOXETINE [Concomitant]
     Active Substance: FLUOXETINE HYDROCHLORIDE
     Indication: INSOMNIA
     Route: 048
     Dates: start: 2017
  6. METHYLCOBALAMIN. [Concomitant]
     Active Substance: METHYLCOBALAMIN
     Indication: INSOMNIA
     Route: 048
     Dates: start: 2017
  7. METHYLCOBALAMIN. [Concomitant]
     Active Substance: METHYLCOBALAMIN
     Indication: HEADACHE
  8. DAFLON [Concomitant]
     Indication: CARDIOVASCULAR DISORDER
     Route: 048
  9. HUMIRA [Suspect]
     Active Substance: ADALIMUMAB
     Indication: PSORIATIC ARTHROPATHY
     Route: 058
     Dates: start: 20101029
  10. SULPIRIDE [Concomitant]
     Active Substance: SULPIRIDE
     Indication: INSOMNIA
     Route: 048
     Dates: start: 2017
  11. SULPIRIDE [Concomitant]
     Active Substance: SULPIRIDE
     Indication: HEADACHE
  12. NORTRIPTYLINE [Concomitant]
     Active Substance: NORTRIPTYLINE
     Indication: HEADACHE
  13. GINKGO BILOBA [Concomitant]
     Active Substance: GINKGO
     Indication: HEADACHE
     Route: 048
     Dates: start: 2017
  14. NORTRIPTYLINE [Concomitant]
     Active Substance: NORTRIPTYLINE
     Indication: INSOMNIA
     Route: 048
     Dates: start: 2017
  15. VITAMIN K [Concomitant]
     Active Substance: PHYTONADIONE
     Indication: HEADACHE
     Route: 048
     Dates: start: 2017
  16. VITAMIN K [Concomitant]
     Active Substance: PHYTONADIONE
     Indication: INSOMNIA
  17. FAMOTIDINE. [Concomitant]
     Active Substance: FAMOTIDINE
     Indication: INSOMNIA
  18. VITAMIN D3 [Concomitant]
     Active Substance: CHOLECALCIFEROL
     Indication: HEADACHE
  19. VITAMIN D3 [Concomitant]
     Active Substance: CHOLECALCIFEROL
     Indication: INSOMNIA
     Route: 048
     Dates: start: 2017

REACTIONS (11)
  - Varicose vein [Recovering/Resolving]
  - Cardiovascular disorder [Recovering/Resolving]
  - Headache [Recovering/Resolving]
  - Haemorrhage [Unknown]
  - Insomnia [Recovering/Resolving]
  - Arthralgia [Recovering/Resolving]
  - Gait disturbance [Recovering/Resolving]
  - Osteoarthritis [Unknown]
  - Discomfort [Unknown]
  - Haemorrhoids [Not Recovered/Not Resolved]
  - Memory impairment [Unknown]

NARRATIVE: CASE EVENT DATE: 2014
